FAERS Safety Report 4578741-5 (Version None)
Quarter: 2005Q1

REPORT INFORMATION
  Report Type: 
  Country: None (occurrence: None)
  Receive Date: 20050211
  Receipt Date: 20050202
  Transmission Date: 20050727
  Serious: Yes (Hospitalization)
  Sender: FDA-Public Use
  Company Number: IT-GLAXOSMITHKLINE-B0370912A

PATIENT
  Age: 54 Year
  Sex: Male

DRUGS (3)
  1. ZIDOVUDINE [Suspect]
     Indication: HIV INFECTION
     Dosage: 300MG PER DAY
     Route: 048
     Dates: start: 20041021, end: 20050111
  2. LAMIVUDINE [Concomitant]
     Indication: HIV INFECTION
     Dosage: 300MG PER DAY
     Route: 048
  3. NELFINAVIR [Concomitant]
     Indication: HIV INFECTION
     Route: 048

REACTIONS (4)
  - ANAEMIA [None]
  - ASTHENIA [None]
  - TACHYCARDIA [None]
  - TACHYPNOEA [None]
